FAERS Safety Report 15271604 (Version 2)
Quarter: 2018Q3

REPORT INFORMATION
  Report Type: Spontaneous
  Country: GB (occurrence: GB)
  Receive Date: 20180813
  Receipt Date: 20180829
  Transmission Date: 20181010
  Serious: Yes (Hospitalization, Other)
  Sender: FDA-Public Use
  Company Number: PHHY2018GB070778

PATIENT
  Age: 76 Year
  Sex: Female
  Weight: 72.6 kg

DRUGS (33)
  1. SODIUM CHLORIDE. [Concomitant]
     Active Substance: SODIUM CHLORIDE
     Indication: PRODUCT USED FOR UNKNOWN INDICATION
     Dosage: 1000 ML, QD (ONCE)
     Route: 042
     Dates: start: 20180317, end: 20180319
  2. DALTEPARIN [Concomitant]
     Active Substance: DALTEPARIN
     Indication: PRODUCT USED FOR UNKNOWN INDICATION
     Dosage: 1 DF, QD (1 IN 1 DAY)
     Route: 058
     Dates: start: 20180312, end: 20180322
  3. PROPOFOL. [Concomitant]
     Active Substance: PROPOFOL
     Indication: SEDATION
     Dosage: 30 MG, UNK (10?30 MG)
     Route: 042
     Dates: start: 20180312, end: 20180312
  4. PARACETAMOL [Concomitant]
     Active Substance: ACETAMINOPHEN
     Dosage: UNK
     Route: 042
  5. LISINOPRIL. [Suspect]
     Active Substance: LISINOPRIL
     Indication: PRODUCT USED FOR UNKNOWN INDICATION
     Dosage: 10 MG, QD
     Route: 048
     Dates: start: 20180314, end: 20180326
  6. PENTHROX [Suspect]
     Active Substance: METHOXYFLURANE
     Indication: PAIN
     Dosage: UNK (6?10 PUFFS 99.9% METHOXYFLURANE AT 18:30 AND AT 19:45)
     Route: 055
     Dates: start: 20180312, end: 20180312
  7. MORPHINE SULFATE. [Concomitant]
     Active Substance: MORPHINE SULFATE
     Indication: PAIN
     Dosage: 10 MG, PRN (2.5 ? 10 MG)
     Route: 048
     Dates: start: 20180312, end: 20180315
  8. MORPHINE SULFATE. [Concomitant]
     Active Substance: MORPHINE SULFATE
     Dosage: 2 MG, PRN (0.5 ? 2 MG)
     Route: 042
     Dates: start: 20180312, end: 20180313
  9. NALOXONE [Concomitant]
     Active Substance: NALOXONE
     Dosage: 100 UG, PRN
     Route: 042
     Dates: start: 20180314, end: 20180314
  10. CYCLIZINE [Concomitant]
     Active Substance: CYCLIZINE
     Indication: VOMITING
     Dosage: UNK
     Route: 065
  11. LISINOPRIL. [Suspect]
     Active Substance: LISINOPRIL
     Dosage: 2.5 MG, QD
     Route: 048
     Dates: start: 20180326, end: 20180328
  12. PARACETAMOL [Concomitant]
     Active Substance: ACETAMINOPHEN
     Dosage: 4 G, QD (1G OR INFUSION 1G   )
     Route: 065
     Dates: start: 20180313, end: 20180328
  13. FENTANYL. [Concomitant]
     Active Substance: FENTANYL
     Indication: PRODUCT USED FOR UNKNOWN INDICATION
     Dosage: 50 UG, PRN (25 ? 50 MCG)
     Route: 042
     Dates: start: 20180313, end: 20180313
  14. SODIUM LACTATE. [Concomitant]
     Active Substance: SODIUM LACTATE
     Indication: PRODUCT USED FOR UNKNOWN INDICATION
     Dosage: 100 OT, QD (100 ML/HR CONTINUOUS INFUSION (100, ONCE))
     Route: 042
     Dates: start: 20180313, end: 20180314
  15. SODIUM LACTATE. [Concomitant]
     Active Substance: SODIUM LACTATE
     Dosage: 125 OT, QD (125 ML/HR CONTINUOUS INFUSION (125, ONCE))
     Route: 042
     Dates: start: 20180314, end: 20180314
  16. PROPOFOL. [Concomitant]
     Active Substance: PROPOFOL
     Indication: INJURY
     Dosage: UNK
     Route: 065
  17. CYCLIZINE [Concomitant]
     Active Substance: CYCLIZINE
     Indication: NAUSEA
     Dosage: 50 MG, PRN
     Route: 042
     Dates: start: 20180313, end: 20180314
  18. VANCOMYCIN [Suspect]
     Active Substance: VANCOMYCIN
     Indication: INFECTION
     Dosage: 1000 MG, UNK (IN SODIUM CHLORIDE 0.9% 50 ML INFUSION)
     Route: 065
     Dates: start: 20180313, end: 20180313
  19. PARACETAMOL [Concomitant]
     Active Substance: ACETAMINOPHEN
     Indication: PAIN
     Dosage: UNK (ONCE)
     Route: 042
     Dates: start: 20180312, end: 20180312
  20. IOHEXOL [Concomitant]
     Active Substance: IOHEXOL
     Indication: PRODUCT USED FOR UNKNOWN INDICATION
     Dosage: 70 ML, QD (ONCE)
     Route: 042
     Dates: start: 20180319, end: 20180319
  21. SODIUM LACTATE. [Concomitant]
     Active Substance: SODIUM LACTATE
     Dosage: UNK
     Route: 042
     Dates: start: 20180312, end: 20180317
  22. AMITRIPTYLINE [Concomitant]
     Active Substance: AMITRIPTYLINE
     Dosage: 50 MG, QD
     Route: 048
     Dates: start: 20180317, end: 20180328
  23. ANASTROZOLE. [Concomitant]
     Active Substance: ANASTROZOLE
     Indication: PRODUCT USED FOR UNKNOWN INDICATION
     Dosage: UNK, QD (DAILY)
     Route: 048
     Dates: start: 20180312, end: 20180328
  24. METARAMINOL [Concomitant]
     Active Substance: METARAMINOL
     Indication: PRODUCT USED FOR UNKNOWN INDICATION
     Dosage: 0.5 MG, PRN
     Route: 042
     Dates: start: 20180313, end: 20180313
  25. VANCOMYCIN [Suspect]
     Active Substance: VANCOMYCIN
     Dosage: 1000 MG, UNK (IN SODIUM CHLORIDE 0.9% 250 ML INFUSION)
     Route: 065
     Dates: start: 20180314, end: 20180315
  26. TRANEXAMIC ACID. [Concomitant]
     Active Substance: TRANEXAMIC ACID
     Indication: PRODUCT USED FOR UNKNOWN INDICATION
     Dosage: 1 G, PRN
     Route: 065
     Dates: start: 20180313, end: 20180313
  27. MORPHINE [Concomitant]
     Active Substance: MORPHINE
     Indication: PRODUCT USED FOR UNKNOWN INDICATION
     Dosage: UNK
     Route: 042
  28. MACROGOL [Concomitant]
     Active Substance: POLYETHYLENE GLYCOLS
     Indication: PRODUCT USED FOR UNKNOWN INDICATION
     Dosage: 1 ?G/L, BID (1 SACHET)
     Route: 048
     Dates: start: 20180313, end: 20180328
  29. LISINOPRIL. [Suspect]
     Active Substance: LISINOPRIL
     Dosage: 2.5 MG, QD
     Route: 048
     Dates: start: 20180419, end: 20180419
  30. GENTAMICIN. [Suspect]
     Active Substance: GENTAMICIN
     Indication: PRODUCT USED FOR UNKNOWN INDICATION
     Dosage: 120 MG, PRN
     Route: 065
     Dates: start: 20180313, end: 20180313
  31. AMITRIPTYLINE [Concomitant]
     Active Substance: AMITRIPTYLINE
     Indication: PRODUCT USED FOR UNKNOWN INDICATION
     Dosage: 50 MG, QD (DAILY)
     Route: 048
     Dates: start: 20180312, end: 20180313
  32. NALOXONE [Concomitant]
     Active Substance: NALOXONE
     Indication: PRODUCT USED FOR UNKNOWN INDICATION
     Dosage: 100 UG, UNK
     Route: 042
     Dates: start: 20180313
  33. LEVOBUPIVACAINE [Concomitant]
     Active Substance: LEVOBUPIVACAINE
     Indication: PRODUCT USED FOR UNKNOWN INDICATION
     Dosage: UNK, PRN
     Route: 065
     Dates: start: 20180313, end: 20180313

REACTIONS (2)
  - Pulmonary embolism [Recovering/Resolving]
  - Acute kidney injury [Recovered/Resolved]

NARRATIVE: CASE EVENT DATE: 20180314
